FAERS Safety Report 4331504-8 (Version None)
Quarter: 2004Q2

REPORT INFORMATION
  Report Type: 
  Country: None (occurrence: None)
  Receive Date: 20040405
  Receipt Date: 20040329
  Transmission Date: 20050107
  Serious: Yes (Other)
  Sender: FDA-Public Use
  Company Number: PHNU2004DE01402

PATIENT
  Age: 11 Year
  Sex: Male

DRUGS (1)
  1. RITALIN-SR [Suspect]
     Route: 048

REACTIONS (1)
  - FACIAL PARESIS [None]
